FAERS Safety Report 4713479-2 (Version None)
Quarter: 2005Q3

REPORT INFORMATION
  Report Type: 
  Country: None (occurrence: None)
  Receive Date: 20050712
  Receipt Date: 20050627
  Transmission Date: 20060218
  Serious: Yes (Hospitalization)
  Sender: FDA-Public Use
  Company Number: 005087

PATIENT
  Age: 33 Year
  Sex: Female
  Weight: 68.9 kg

DRUGS (5)
  1. NORETHINDRONE ACETATE (NORETHINDRONE ACETATE)TABLET, 5MG [Suspect]
     Indication: ENDOMETRIOSIS
     Dosage: SEE IMAGE
     Route: 048
     Dates: start: 20050308, end: 20050418
  2. NORETHINDRONE ACETATE (NORETHINDRONE ACETATE)TABLET, 5MG [Suspect]
     Indication: ENDOMETRIOSIS
     Dosage: SEE IMAGE
     Route: 048
     Dates: start: 20050419, end: 20050613
  3. IBUPROFEN [Suspect]
     Indication: DYSMENORRHOEA
     Dosage: 800.00 MG, PRN, ORAL
     Route: 048
     Dates: start: 20050610, end: 20050613
  4. LEVAQUIN [Suspect]
     Indication: URINARY TRACT INFECTION
     Dosage: ORAL
     Route: 048
     Dates: start: 20050602, end: 20050612
  5. EFFEXOR [Concomitant]

REACTIONS (18)
  - ASTHENIA [None]
  - CHEST PAIN [None]
  - DEHYDRATION [None]
  - DIFFICULTY IN WALKING [None]
  - DYSARTHRIA [None]
  - DYSMENORRHOEA [None]
  - DYSPNOEA [None]
  - GAIT DISTURBANCE [None]
  - INSOMNIA [None]
  - JAUNDICE [None]
  - LETHARGY [None]
  - METRORRHAGIA [None]
  - OVERDOSE [None]
  - PAIN IN EXTREMITY [None]
  - RENAL FAILURE ACUTE [None]
  - URINARY TRACT INFECTION [None]
  - WEIGHT DECREASED [None]
  - WEIGHT INCREASED [None]
